FAERS Safety Report 22312535 (Version 2)
Quarter: 2023Q4

REPORT INFORMATION
  Report Type: Spontaneous
  Country: US (occurrence: US)
  Receive Date: 20230512
  Receipt Date: 20231218
  Transmission Date: 20240110
  Serious: No
  Sender: FDA-Public Use
  Company Number: US-BRISTOL-MYERS SQUIBB COMPANY-2023-067234

PATIENT
  Age: 68 Year
  Sex: Male
  Weight: 49.5 kg

DRUGS (2)
  1. REVLIMID [Suspect]
     Active Substance: LENALIDOMIDE
     Indication: Plasma cell myeloma
     Route: 048
  2. REVLIMID [Suspect]
     Active Substance: LENALIDOMIDE
     Route: 048

REACTIONS (9)
  - Myalgia [Unknown]
  - Pain [Unknown]
  - Illness [Unknown]
  - Tooth disorder [Unknown]
  - Back pain [Unknown]
  - Fatigue [Unknown]
  - Insomnia [Unknown]
  - Decreased appetite [Unknown]
  - Off label use [Unknown]

NARRATIVE: CASE EVENT DATE: 20230511
